FAERS Safety Report 5145087-6 (Version None)
Quarter: 2006Q4

REPORT INFORMATION
  Report Type: 
  Country: None (occurrence: None)
  Receive Date: 20061107
  Receipt Date: 20061025
  Transmission Date: 20070319
  Serious: Yes (Hospitalization)
  Sender: FDA-Public Use
  Company Number: JP-ELI_LILLY_AND_COMPANY-JP200610005238

PATIENT
  Age: 73 Year
  Sex: Female

DRUGS (2)
  1. RALOXIFENE HCL [Suspect]
     Indication: OSTEOPOROSIS POSTMENOPAUSAL
     Dosage: 60 MG, DAILY (1/D)
     Route: 048
     Dates: start: 20050510, end: 20060522
  2. VOLTAREN                                /SCH/ [Concomitant]
     Dosage: 25 MG, DAILY (1/D)
     Route: 054
     Dates: start: 20050510, end: 20060522

REACTIONS (1)
  - ILEUS [None]
